FAERS Safety Report 18562182 (Version 1)
Quarter: 2020Q4

REPORT INFORMATION
  Report Type: Spontaneous
  Country: IT (occurrence: IT)
  Receive Date: 20201201
  Receipt Date: 20201201
  Transmission Date: 20210114
  Serious: Yes (Hospitalization, Other)
  Sender: FDA-Public Use
  Company Number: IT-SA-2020SA341878

PATIENT

DRUGS (1)
  1. AUBAGIO [Suspect]
     Active Substance: TERIFLUNOMIDE
     Indication: MULTIPLE SCLEROSIS
     Dosage: 14 MG, QD
     Route: 048
     Dates: start: 20161103, end: 20200626

REACTIONS (3)
  - Glioblastoma [Unknown]
  - Central nervous system lesion [Unknown]
  - Central nervous system neoplasm [Unknown]

NARRATIVE: CASE EVENT DATE: 20201013
